FAERS Safety Report 24130583 (Version 1)
Quarter: 2024Q3

REPORT INFORMATION
  Report Type: Report from Study
  Country: US (occurrence: None)
  Receive Date: 20240724
  Receipt Date: 20240724
  Transmission Date: 20241016
  Serious: Yes (Other)
  Sender: ASTRAZENECA
  Company Number: 2021A506891

PATIENT
  Sex: Male

DRUGS (1)
  1. CALQUENCE [Suspect]
     Active Substance: ACALABRUTINIB
     Indication: Chronic lymphocytic leukaemia
     Route: 048
     Dates: start: 20210526

REACTIONS (5)
  - Haemolytic anaemia [Unknown]
  - White blood cell count increased [Unknown]
  - Pyrexia [Recovered/Resolved]
  - Chills [Unknown]
  - Pollakiuria [Unknown]
